FAERS Safety Report 18886450 (Version 5)
Quarter: 2021Q3

REPORT INFORMATION
  Report Type: Spontaneous
  Country: US (occurrence: US)
  Receive Date: 20210212
  Receipt Date: 20210830
  Transmission Date: 20211014
  Serious: No
  Sender: FDA-Public Use
  Company Number: US-VERTEX PHARMACEUTICALS-2021-002198

PATIENT
  Age: 33 Year
  Sex: Male

DRUGS (2)
  1. TRIKAFTA [Suspect]
     Active Substance: ELEXACAFTOR\IVACAFTOR\TEZACAFTOR
     Indication: CYSTIC FIBROSIS
     Dosage: 100MG/50 MG/75 MG AND 150 MG, UNK FREQ
     Route: 048
     Dates: start: 20210202, end: 20210305
  2. TRIKAFTA [Suspect]
     Active Substance: ELEXACAFTOR\IVACAFTOR\TEZACAFTOR
     Dosage: (50MG ELEXACAFTOR/25MG TEZACAFTOR/37.5MG IVACAFTOR AND 75MG IVACAFTOR), UNK FREQ
     Route: 048
     Dates: start: 20210730

REACTIONS (9)
  - Rash erythematous [Unknown]
  - Peripheral swelling [Not Recovered/Not Resolved]
  - Impaired healing [Not Recovered/Not Resolved]
  - Productive cough [Recovered/Resolved]
  - Lip swelling [Unknown]
  - Mouth swelling [Unknown]
  - Hypersensitivity [Unknown]
  - Abdominal distension [Not Recovered/Not Resolved]
  - Epistaxis [Not Recovered/Not Resolved]

NARRATIVE: CASE EVENT DATE: 2021
